FAERS Safety Report 5294748-7 (Version None)
Quarter: 2007Q2

REPORT INFORMATION
  Report Type: 
  Country: None (occurrence: None)
  Receive Date: 20070406
  Receipt Date: 20070329
  Transmission Date: 20071010
  Serious: Yes (Death)
  Sender: FDA-Public Use
  Company Number: 154399USA

PATIENT
  Age: 71 Year
  Sex: Male

DRUGS (7)
  1. FLUOROURACIL [Suspect]
     Indication: COLORECTAL CANCER METASTATIC
     Dosage: 564 MILLIGRAM 1/2 WEEK, INTRAVENOUS (NOT OTHERWISE SPECIFIED)
     Route: 042
     Dates: start: 20061206, end: 20070212
  2. FOLINIC ACID [Suspect]
     Indication: COLORECTAL CANCER METASTATIC
     Dosage: 752 MILLIGRAM 1/2 WEEK, INTRAVENOUS (NOT OTHERWISE SPECIFIED)
     Route: 042
     Dates: start: 20061206, end: 20070212
  3. CETUXIMAB [Suspect]
     Indication: COLORECTAL CANCER METASTATIC
     Dosage: 470 MILLIGRAM WEEK, INTRAVENOUS (NOT OTHERWISE SPECIFIED)
     Route: 042
     Dates: start: 20061206, end: 20070212
  4. BEVACIZUMAB [Suspect]
     Indication: COLORECTAL CANCER METASTATIC
     Dosage: 552 MILLIGRAM 2 WEEK, INTRAVENOUS
     Route: 042
     Dates: start: 20061206, end: 20070212
  5. OLMESARTAN MEDOXOMIL [Concomitant]
  6. AMLODIPINE [Concomitant]
  7. VICODIN [Concomitant]

REACTIONS (6)
  - ARTERIOSCLEROSIS [None]
  - GASTROINTESTINAL EROSION [None]
  - HYPERTENSIVE HEART DISEASE [None]
  - INTESTINAL ULCER PERFORATION [None]
  - PAIN [None]
  - PERITONITIS [None]
